FAERS Safety Report 21662673 (Version 1)
Quarter: 2022Q4

REPORT INFORMATION
  Report Type: Spontaneous
  Country: TW (occurrence: TW)
  Receive Date: 20221130
  Receipt Date: 20221130
  Transmission Date: 20230113
  Serious: Yes (Other)
  Sender: FDA-Public Use
  Company Number: TW-MYLANLABS-2022M1133153

PATIENT
  Sex: Female

DRUGS (4)
  1. ZOLOFT [Suspect]
     Active Substance: SERTRALINE HYDROCHLORIDE
     Indication: Post-traumatic stress disorder
     Dosage: 25 MILLIGRAM, BID
     Route: 048
     Dates: start: 20221123
  2. ZOLOFT [Suspect]
     Active Substance: SERTRALINE HYDROCHLORIDE
     Indication: Depression
  3. FLUPINE [Concomitant]
     Indication: Bipolar disorder
     Dosage: UNK UNK, PRN
     Route: 048
  4. ESCITALO [Concomitant]
     Indication: Bipolar disorder
     Dosage: UNK UNK, PRN
     Route: 048

REACTIONS (4)
  - Mental impairment [Recovering/Resolving]
  - Hallucination [Recovering/Resolving]
  - Panic attack [Recovering/Resolving]
  - Off label use [Unknown]

NARRATIVE: CASE EVENT DATE: 20221123
